FAERS Safety Report 9181506 (Version 3)
Quarter: 2013Q2

REPORT INFORMATION
  Report Type: Spontaneous
  Country: GB (occurrence: GB)
  Receive Date: 20130321
  Receipt Date: 20130411
  Transmission Date: 20140414
  Serious: Yes (Hospitalization)
  Sender: FDA-Public Use
  Company Number: PHFR2013GB001756

PATIENT
  Age: 19 Year
  Sex: Female

DRUGS (1)
  1. CLOZARIL [Suspect]
     Indication: SCHIZOPHRENIA
     Dosage: UNK
     Route: 048
     Dates: start: 20130124

REACTIONS (3)
  - Encephalitis autoimmune [Recovering/Resolving]
  - White blood cell count increased [Not Recovered/Not Resolved]
  - Neutrophil count increased [Recovering/Resolving]
